FAERS Safety Report 10013492 (Version 1)
Quarter: 2014Q1

REPORT INFORMATION
  Report Type: Report from Study
  Country: TW (occurrence: TW)
  Receive Date: 20140314
  Receipt Date: 20140314
  Transmission Date: 20141002
  Serious: Yes (Death)
  Sender: FDA-Public Use
  Company Number: TW-B.I. PHARMACEUTICALS,INC./RIDGEFIELD-2014-BI-11119CS

PATIENT
  Age: 64 Year
  Sex: Female
  Weight: 69.9 kg

DRUGS (1)
  1. AFATINIB [Suspect]
     Indication: NON-SMALL CELL LUNG CANCER
     Dosage: 40 MG
     Dates: start: 20121016, end: 20140127

REACTIONS (1)
  - Malignant neoplasm progression [Fatal]
